FAERS Safety Report 5122537-2 (Version None)
Quarter: 2006Q4

REPORT INFORMATION
  Report Type: 
  Country: None (occurrence: None)
  Receive Date: 20061009
  Receipt Date: 20060928
  Transmission Date: 20070319
  Serious: Yes (Other)
  Sender: FDA-Public Use
  Company Number: FR-JNJFOC-20060904979

PATIENT
  Age: 64 Year
  Sex: Female
  Weight: 70 kg

DRUGS (5)
  1. REMICADE [Suspect]
     Indication: RHEUMATOID ARTHRITIS
     Dosage: 24 INFUSIONS
     Route: 042
  2. NOVATREX [Concomitant]
     Indication: RHEUMATOID ARTHRITIS
     Dosage: 5-12.5 MG
     Route: 048
  3. CORTANCYL [Concomitant]
     Indication: RHEUMATOID ARTHRITIS
     Route: 048
  4. EFFERALGAN CODEINE [Concomitant]
     Indication: RHEUMATOID ARTHRITIS
     Dosage: 2-4 TAP
     Route: 048
  5. CO VIT D [Concomitant]
     Route: 065

REACTIONS (1)
  - RECTAL CANCER STAGE I [None]
